FAERS Safety Report 4457492-1 (Version None)
Quarter: 2004Q3

REPORT INFORMATION
  Report Type: 
  Country: None (occurrence: None)
  Receive Date: 20040901
  Receipt Date: 20040511
  Transmission Date: 20050211
  Serious: No
  Sender: FDA-Public Use
  Company Number: 138853USA

PATIENT
  Age: 59 Year
  Sex: Female
  Weight: 83.9154 kg

DRUGS (1)
  1. FOSINOPRIL [Suspect]
     Dosage: 10 MILLIGRAM ORAL
     Route: 048
     Dates: start: 20040101, end: 20040301

REACTIONS (1)
  - DYSPEPSIA [None]
